FAERS Safety Report 18001641 (Version 1)
Quarter: 2020Q3

REPORT INFORMATION
  Report Type: Spontaneous
  Country: CN (occurrence: CN)
  Receive Date: 20200709
  Receipt Date: 20200709
  Transmission Date: 20201103
  Serious: Yes (Death, Other)
  Sender: FDA-Public Use
  Company Number: NVSC2020CN191955

PATIENT
  Age: 85 Year
  Sex: Male

DRUGS (2)
  1. MOXIFLOXACIN. [Suspect]
     Active Substance: MOXIFLOXACIN
     Indication: NOSOCOMIAL INFECTION
     Dosage: UNK
     Route: 065
  2. SODIUM CHLORIDE. [Suspect]
     Active Substance: SODIUM CHLORIDE
     Indication: NOSOCOMIAL INFECTION
     Dosage: 250 ML
     Route: 065

REACTIONS (2)
  - Torsade de pointes [Fatal]
  - Electrocardiogram QT prolonged [Unknown]
